FAERS Safety Report 13780696 (Version 1)
Quarter: 2017Q3

REPORT INFORMATION
  Report Type: Spontaneous
  Country: US (occurrence: US)
  Receive Date: 20170721
  Receipt Date: 20170721
  Transmission Date: 20171127
  Serious: Yes (Death)
  Sender: FDA-Public Use
  Company Number: None

PATIENT
  Sex: Male

DRUGS (3)
  1. JANUVIA [Concomitant]
     Active Substance: SITAGLIPTIN PHOSPHATE
  2. ZALEPLON. [Concomitant]
     Active Substance: ZALEPLON
  3. ZYTIGA [Suspect]
     Active Substance: ABIRATERONE ACETATE
     Indication: OESOPHAGITIS
     Route: 048
     Dates: start: 201511

REACTIONS (1)
  - Death [None]
